FAERS Safety Report 14405836 (Version 1)
Quarter: 2018Q1

REPORT INFORMATION
  Report Type: Spontaneous
  Country: IT (occurrence: IT)
  Receive Date: 20180118
  Receipt Date: 20180118
  Transmission Date: 20180509
  Serious: Yes (Other)
  Sender: FDA-Public Use
  Company Number: IT-ABBVIE-17S-083-2169140-00

PATIENT
  Age: 38 Year
  Sex: Female

DRUGS (4)
  1. VIEKIRAX [Suspect]
     Active Substance: OMBITASVIR\PARITAPREVIR\RITONAVIR
     Indication: CHRONIC HEPATITIS C
     Dosage: 2 TABLETS AT 08:00 A.M.
     Route: 048
     Dates: start: 20170706, end: 20170928
  2. EXVIERA [Suspect]
     Active Substance: DASABUVIR
     Indication: CHRONIC HEPATITIS C
     Dosage: 1 TABLET AT 08:00 A.M.; 1 TABLET AT 08:00 P.M.
     Route: 048
     Dates: start: 20170706, end: 20170928
  3. EXVIERA [Suspect]
     Active Substance: DASABUVIR
     Indication: HEPATIC FIBROSIS
  4. VIEKIRAX [Suspect]
     Active Substance: OMBITASVIR\PARITAPREVIR\RITONAVIR
     Indication: HEPATIC FIBROSIS

REACTIONS (3)
  - Exposure during pregnancy [Unknown]
  - Foetal death [Unknown]
  - Abortion spontaneous [Unknown]
